FAERS Safety Report 7503341-4 (Version None)
Quarter: 2011Q2

REPORT INFORMATION
  Report Type: 
  Country: None (occurrence: None)
  Receive Date: 20110525
  Receipt Date: 20110520
  Transmission Date: 20111010
  Serious: Yes (Other)
  Sender: FDA-Public Use
  Company Number: US-PFIZER INC-2011110642

PATIENT
  Sex: Female
  Weight: 67.12 kg

DRUGS (2)
  1. ADVIL LIQUI-GELS [Suspect]
     Indication: MUSCLE SPASMS
     Dosage: UNK
     Route: 048
     Dates: start: 20110520
  2. CALCIUM [Concomitant]
     Dosage: 600 MG, DAILY
     Dates: start: 20110101

REACTIONS (2)
  - URTICARIA [None]
  - PRURITUS GENERALISED [None]
